FAERS Safety Report 13108383 (Version 9)
Quarter: 2024Q3

REPORT INFORMATION
  Report Type: Report from Study
  Country: JP (occurrence: JP)
  Receive Date: 20170112
  Receipt Date: 20240716
  Transmission Date: 20241017
  Serious: Yes (Other)
  Sender: NOVARTIS
  Company Number: PHJP2017JP000775

PATIENT
  Age: 43 Year
  Sex: Male
  Weight: 103.8 kg

DRUGS (4)
  1. TAFINLAR [Suspect]
     Active Substance: DABRAFENIB MESYLATE
     Indication: Malignant melanoma stage III
     Dosage: 300 MG
     Route: 048
     Dates: start: 20170628, end: 20170629
  2. TAFINLAR [Suspect]
     Active Substance: DABRAFENIB MESYLATE
     Dosage: 300 MG
     Route: 048
     Dates: start: 20170719, end: 20180515
  3. MEKINIST [Suspect]
     Active Substance: TRAMETINIB DIMETHYL SULFOXIDE
     Indication: Malignant melanoma stage III
     Dosage: 2 MG
     Route: 048
     Dates: start: 20170628, end: 20170629
  4. MEKINIST [Suspect]
     Active Substance: TRAMETINIB DIMETHYL SULFOXIDE
     Dosage: 2 MG
     Route: 048
     Dates: start: 20170719, end: 20180515

REACTIONS (11)
  - Rhabdomyolysis [Recovering/Resolving]
  - Pyrexia [Recovered/Resolved]
  - Tumour necrosis [Unknown]
  - Haematoma [Unknown]
  - Defect conduction intraventricular [Recovered/Resolved]
  - Electrocardiogram QRS complex prolonged [Unknown]
  - Aortic valve incompetence [Unknown]
  - Mitral valve incompetence [Unknown]
  - Tricuspid valve incompetence [Unknown]
  - Rash [Recovering/Resolving]
  - Therapeutic response decreased [Unknown]

NARRATIVE: CASE EVENT DATE: 20170629
